FAERS Safety Report 12986653 (Version 1)
Quarter: 2016Q4

REPORT INFORMATION
  Report Type: Spontaneous
  Country: US (occurrence: US)
  Receive Date: 20161129
  Receipt Date: 20161129
  Transmission Date: 20170207
  Serious: Yes (Hospitalization)
  Sender: FDA-Public Use
  Company Number: None

PATIENT
  Age: 49 Year
  Sex: Male
  Weight: 101.1 kg

DRUGS (1)
  1. GADOTERIDOL [Suspect]
     Active Substance: GADOTERIDOL
     Route: 042
     Dates: start: 20160907, end: 20160907

REACTIONS (1)
  - Urticaria [None]

NARRATIVE: CASE EVENT DATE: 20160907
